FAERS Safety Report 9828653 (Version 1)
Quarter: 2014Q1

REPORT INFORMATION
  Report Type: Report from Study
  Country: US (occurrence: US)
  Receive Date: 20140117
  Receipt Date: 20140117
  Transmission Date: 20141002
  Serious: Yes (Other)
  Sender: FDA-Public Use
  Company Number: US-US-EMD SERONO, INC.-7262859

PATIENT
  Age: 15 Year
  Sex: Male
  Weight: 47 kg

DRUGS (6)
  1. SAIZEN [(SOMATROPIN (RDNA ORIGIN) FOR INJECTION)] [Suspect]
     Indication: SMALL FOR DATES BABY
     Route: 058
     Dates: start: 20110210
  2. SAIZEN [(SOMATROPIN (RDNA ORIGIN) FOR INJECTION)] [Suspect]
     Indication: BODY HEIGHT BELOW NORMAL
  3. ADDERALL [Concomitant]
     Indication: ATTENTION DEFICIT/HYPERACTIVITY DISORDER
  4. ADDERALL [Concomitant]
     Dates: start: 2012
  5. GUANFACINE HYDROCHLORIDE [Concomitant]
     Indication: ATTENTION DEFICIT/HYPERACTIVITY DISORDER
  6. GUANFACINE HYDROCHLORIDE [Concomitant]
     Dates: start: 2012

REACTIONS (6)
  - Pneumonia [Recovered/Resolved]
  - Bronchitis [Recovered/Resolved]
  - Acne [Unknown]
  - Tendon pain [Not Recovered/Not Resolved]
  - Foot deformity [Not Recovered/Not Resolved]
  - Arthralgia [Not Recovered/Not Resolved]
